FAERS Safety Report 13237503 (Version 1)
Quarter: 2017Q1

REPORT INFORMATION
  Report Type: Other
  Country: None (occurrence: US)
  Receive Date: 20170215
  Receipt Date: 20170215
  Transmission Date: 20170428
  Serious: Yes (Other)
  Sender: FDA-Public Use
  Company Number: US-GUTHY-RENKER LLC-1063169

PATIENT
  Age: 44 Year
  Sex: Female

DRUGS (1)
  1. MEANINGFUL BEAUTY CINDY CRAWFORD ANTIOXIDANT SPF 20 UVA/UVB [Suspect]
     Active Substance: AVOBENZONE\OCTINOXATE\OCTISALATE\OXYBENZONE
     Indication: PROPHYLAXIS AGAINST SOLAR RADIATION
     Route: 061
     Dates: start: 20160313, end: 20170130

REACTIONS (7)
  - Diplopia [None]
  - Eye infection [Recovered/Resolved]
  - Rash pruritic [None]
  - Skin ulcer [None]
  - Ulcerative keratitis [None]
  - Eye irritation [None]
  - Lacrimation disorder [None]

NARRATIVE: CASE EVENT DATE: 20160313
